FAERS Safety Report 6845578-3 (Version None)
Quarter: 2010Q3

REPORT INFORMATION
  Report Type: 
  Country: None (occurrence: None)
  Receive Date: 20100715
  Receipt Date: 20080904
  Transmission Date: 20110219
  Serious: Yes (Other)
  Sender: FDA-Public Use
  Company Number: US-PFIZER INC-2007070489

PATIENT
  Sex: Female
  Weight: 62.6 kg

DRUGS (3)
  1. CHANTIX [Suspect]
     Indication: SMOKING CESSATION THERAPY
     Dates: start: 20070818
  2. AMBIEN [Concomitant]
     Indication: SLEEP DISORDER
  3. XANAX [Concomitant]
     Indication: ANXIETY

REACTIONS (7)
  - ABNORMAL BEHAVIOUR [None]
  - ANGER [None]
  - DEPRESSION [None]
  - INCORRECT DOSE ADMINISTERED [None]
  - NAUSEA [None]
  - NIGHTMARE [None]
  - SUICIDE ATTEMPT [None]
